FAERS Safety Report 8174990-8 (Version None)
Quarter: 2012Q1

REPORT INFORMATION
  Report Type: 
  Country: None (occurrence: None)
  Receive Date: 20120229
  Receipt Date: 20120220
  Transmission Date: 20120608
  Serious: Yes (Hospitalization)
  Sender: FDA-Public Use
  Company Number: PHHO2012FR003041

PATIENT
  Sex: Female
  Weight: 45 kg

DRUGS (1)
  1. ZOLEDRONIC [Suspect]
     Indication: BONE SARCOMA
     Dosage: 2.3 MG, UNK
     Route: 042
     Dates: start: 20110828

REACTIONS (1)
  - NECROTISING FASCIITIS [None]
